FAERS Safety Report 7248905-0 (Version None)
Quarter: 2011Q1

REPORT INFORMATION
  Report Type: 
  Country: None (occurrence: None)
  Receive Date: 20110128
  Receipt Date: 20091028
  Transmission Date: 20110831
  Serious: Yes (Hospitalization, Other)
  Sender: FDA-Public Use
  Company Number: US-BAYER-200937783NA

PATIENT
  Sex: Female
  Weight: 82 kg

DRUGS (4)
  1. YAZ [Suspect]
  2. EFFEXOR [Concomitant]
     Indication: DEPRESSION
     Dosage: DAILY DOSE 225 MG
     Dates: start: 20080601
  3. YAZ [Suspect]
     Indication: PREMENSTRUAL SYNDROME
     Dosage: UNK
     Dates: start: 20070301, end: 20071102
  4. YASMIN [Suspect]
     Indication: PRODUCT USED FOR UNKNOWN INDICATION
     Dosage: UNK

REACTIONS (4)
  - CHOLECYSTITIS [None]
  - DEPRESSION [None]
  - ANXIETY [None]
  - PULMONARY EMBOLISM [None]
